FAERS Safety Report 10250040 (Version 1)
Quarter: 2014Q2

REPORT INFORMATION
  Report Type: Spontaneous
  Country: US (occurrence: US)
  Receive Date: 20140620
  Receipt Date: 20140620
  Transmission Date: 20141212
  Serious: No
  Sender: FDA-Public Use
  Company Number: US-BRISTOL-MYERS SQUIBB COMPANY-20597480

PATIENT
  Sex: Female

DRUGS (1)
  1. ELIQUIS [Suspect]
     Dates: start: 20140317

REACTIONS (1)
  - Thrombocytopenia [Not Recovered/Not Resolved]
